FAERS Safety Report 8409346-3 (Version None)
Quarter: 2012Q2

REPORT INFORMATION
  Report Type: 
  Country: None (occurrence: None)
  Receive Date: 20120605
  Receipt Date: 20120531
  Transmission Date: 20120825
  Serious: No
  Sender: FDA-Public Use
  Company Number: US-BIOGENIDEC-2012BI012432

PATIENT
  Age: 56 Year
  Sex: Female

DRUGS (2)
  1. AVONEX [Concomitant]
     Indication: MULTIPLE SCLEROSIS
     Route: 030
  2. TYSABRI [Suspect]
     Indication: MULTIPLE SCLEROSIS
     Route: 042
     Dates: start: 20101108

REACTIONS (6)
  - FATIGUE [None]
  - HERPES SIMPLEX [None]
  - RASH PAPULAR [None]
  - INCORRECT DRUG ADMINISTRATION RATE [None]
  - ACNE [None]
  - HEADACHE [None]
